FAERS Safety Report 15203146 (Version 1)
Quarter: 2018Q3

REPORT INFORMATION
  Report Type: Spontaneous
  Country: US (occurrence: US)
  Receive Date: 20180726
  Receipt Date: 20180726
  Transmission Date: 20181010
  Serious: No
  Sender: FDA-Public Use
  Company Number: US-ENDO PHARMACEUTICALS INC-2017-004379

PATIENT
  Sex: Female

DRUGS (1)
  1. HYDROCORTISONE TABLETS 20MG [Suspect]
     Active Substance: HYDROCORTISONE
     Indication: ADDISON^S DISEASE
     Dosage: UNK UNK, DAILY, ONE AND HALF TABLET
     Route: 065

REACTIONS (5)
  - Nausea [Unknown]
  - Drug ineffective [Unknown]
  - Vomiting [Unknown]
  - Malaise [Unknown]
  - Wrong technique in product usage process [Unknown]
